FAERS Safety Report 14436133 (Version 1)
Quarter: 2018Q1

REPORT INFORMATION
  Report Type: Spontaneous
  Country: US (occurrence: US)
  Receive Date: 20180124
  Receipt Date: 20180124
  Transmission Date: 20180509
  Serious: Yes (Other)
  Sender: FDA-Public Use
  Company Number: None

PATIENT
  Sex: Female
  Weight: 117 kg

DRUGS (2)
  1. GENVOYA [Concomitant]
     Active Substance: COBICISTAT\ELVITEGRAVIR\EMTRICITABINE\TENOFOVIR ALAFENAMIDE FUMARATE
  2. CIPROFLOXACIN. [Suspect]
     Active Substance: CIPROFLOXACIN
     Indication: URINARY TRACT INFECTION
     Dosage: ?          QUANTITY:1 CAPSULE(S);?
     Route: 048
     Dates: start: 20171128, end: 20171130

REACTIONS (10)
  - Burning sensation [None]
  - Lymphadenopathy [None]
  - Formication [None]
  - Chills [None]
  - Pyrexia [None]
  - Pain [None]
  - Swelling [None]
  - Night sweats [None]
  - Oropharyngeal pain [None]
  - Hypoaesthesia [None]

NARRATIVE: CASE EVENT DATE: 20171130
